FAERS Safety Report 17944484 (Version 1)
Quarter: 2020Q2

REPORT INFORMATION
  Report Type: Spontaneous
  Country: US (occurrence: US)
  Receive Date: 20200625
  Receipt Date: 20200625
  Transmission Date: 20200714
  Serious: No
  Sender: FDA-Public Use
  Company Number: US-GLAXOSMITHKLINE-US2020104197

PATIENT
  Age: 61 Year
  Sex: Male

DRUGS (2)
  1. NICORETTE WHITE ICE MINT [Suspect]
     Active Substance: NICOTINE
     Indication: SMOKING CESSATION THERAPY
     Dosage: UNK
     Dates: start: 20200504
  2. NICORETTE WHITE ICE MINT [Suspect]
     Active Substance: NICOTINE
     Dosage: UNK
     Dates: start: 20200508

REACTIONS (3)
  - Pruritus [Recovering/Resolving]
  - Swelling face [Recovering/Resolving]
  - Adverse drug reaction [Recovered/Resolved]
